FAERS Safety Report 16754978 (Version 1)
Quarter: 2019Q3

REPORT INFORMATION
  Report Type: Spontaneous
  Country: US (occurrence: US)
  Receive Date: 20190711
  Receipt Date: 20190711
  Transmission Date: 20191005
  Serious: Yes (Hospitalization)
  Sender: FDA-Public Use
  Company Number: None

PATIENT
  Age: 60 Year
  Sex: Female
  Weight: 60.33 kg

DRUGS (1)
  1. TOPIRAMATE UNKNOWN 100MG [Suspect]
     Active Substance: TOPIRAMATE
     Indication: MIGRAINE PROPHYLAXIS
     Route: 048
     Dates: start: 2016

REACTIONS (2)
  - Therapy cessation [None]
  - Rash generalised [None]

NARRATIVE: CASE EVENT DATE: 2016
